FAERS Safety Report 16550816 (Version 1)
Quarter: 2019Q3

REPORT INFORMATION
  Report Type: Spontaneous
  Country: GB (occurrence: GB)
  Receive Date: 20190710
  Receipt Date: 20190710
  Transmission Date: 20191004
  Serious: Yes (Life-Threatening, Hospitalization, Other)
  Sender: FDA-Public Use
  Company Number: GB-ACCORD-137420

PATIENT
  Age: 79 Year
  Sex: Female
  Weight: 52 kg

DRUGS (6)
  1. SERTRALINE [Suspect]
     Active Substance: SERTRALINE HYDROCHLORIDE
     Indication: ANXIETY
     Route: 048
     Dates: start: 20190607, end: 20190611
  2. LISINOPRIL. [Concomitant]
     Active Substance: LISINOPRIL
  3. NITROFURANTOIN/NITROFURANTOIN SODIUM [Concomitant]
     Indication: URINARY TRACT INFECTION
     Dates: start: 20190610
  4. SIMVASTATIN. [Concomitant]
     Active Substance: SIMVASTATIN
  5. BENDROFLUMETHIAZIDE [Suspect]
     Active Substance: BENDROFLUMETHIAZIDE
     Indication: ESSENTIAL HYPERTENSION
     Route: 048
     Dates: end: 20190611
  6. METOCLOPRAMIDE. [Concomitant]
     Active Substance: METOCLOPRAMIDE
     Indication: NAUSEA

REACTIONS (3)
  - Confusional state [Unknown]
  - Hyponatraemic seizure [Recovering/Resolving]
  - Hyponatraemia [Recovering/Resolving]

NARRATIVE: CASE EVENT DATE: 20190610
